FAERS Safety Report 19713450 (Version 2)
Quarter: 2023Q4

REPORT INFORMATION
  Report Type: Spontaneous
  Country: FR (occurrence: FR)
  Receive Date: 20210817
  Receipt Date: 20231019
  Transmission Date: 20240110
  Serious: No
  Sender: FDA-Public Use
  Company Number: FR-JAZZ-2021-FR-009845

PATIENT
  Age: 45 Year
  Sex: Female

DRUGS (3)
  1. XYREM [Suspect]
     Active Substance: SODIUM OXYBATE
     Indication: Hypersomnia
     Dosage: 8 GRAM, QD
     Route: 048
     Dates: start: 2014
  2. DEXTROAMPHETAMINE SULFATE [Suspect]
     Active Substance: DEXTROAMPHETAMINE SULFATE
     Indication: Hypersomnia
     Dosage: 60 MILLIGRAM, QD
     Route: 048
     Dates: start: 201706
  3. TARKA [Concomitant]
     Active Substance: TRANDOLAPRIL\VERAPAMIL HYDROCHLORIDE
     Dosage: UNK
     Dates: start: 20230703

REACTIONS (5)
  - Sinus tachycardia [Not Recovered/Not Resolved]
  - Dyspnoea exertional [Recovered/Resolved]
  - Blood pressure diastolic increased [Not Recovered/Not Resolved]
  - Off label use [Unknown]
  - Product use issue [Unknown]

NARRATIVE: CASE EVENT DATE: 20140101
